FAERS Safety Report 15722792 (Version 2)
Quarter: 2020Q4

REPORT INFORMATION
  Report Type: Report from Study
  Country: US (occurrence: US)
  Receive Date: 20181214
  Receipt Date: 20201007
  Transmission Date: 20210113
  Serious: Yes (Other)
  Sender: FDA-Public Use
  Company Number: US-JNJFOC-20181204103

PATIENT
  Sex: Female

DRUGS (3)
  1. TREMFYA [Suspect]
     Active Substance: GUSELKUMAB
     Indication: PRODUCT USED FOR UNKNOWN INDICATION
     Route: 042
  2. TREMFYA [Suspect]
     Active Substance: GUSELKUMAB
  3. TREMFYA [Suspect]
     Active Substance: GUSELKUMAB

REACTIONS (8)
  - Eye swelling [Unknown]
  - Infusion related reaction [Unknown]
  - Incorrect route of product administration [Unknown]
  - Pyrexia [Unknown]
  - Off label use [Unknown]
  - Pharyngeal swelling [Unknown]
  - Urticaria [Unknown]
  - Pruritus [Unknown]
